FAERS Safety Report 23087389 (Version 1)
Quarter: 2023Q4

REPORT INFORMATION
  Report Type: Report from Study
  Country: US (occurrence: US)
  Receive Date: 20231020
  Receipt Date: 20231020
  Transmission Date: 20240110
  Serious: Yes (Other)
  Sender: FDA-Public Use
  Company Number: US-TAKEDA-2023TUS099357

PATIENT
  Age: 37 Year
  Sex: Female

DRUGS (3)
  1. VONICOG ALFA [Suspect]
     Active Substance: VONICOG ALFA
     Indication: Von Willebrand^s disease
     Dosage: UNK
     Route: 065
  2. LYSTEDA [Suspect]
     Active Substance: TRANEXAMIC ACID
     Indication: Von Willebrand^s disease
     Dosage: UNK
     Route: 065
  3. CYKLOKAPRON [Suspect]
     Active Substance: TRANEXAMIC ACID
     Indication: Von Willebrand^s disease
     Dosage: UNK
     Route: 065

REACTIONS (6)
  - Drug effect less than expected [Unknown]
  - Heavy menstrual bleeding [Unknown]
  - Gait disturbance [Unknown]
  - Pain [Unknown]
  - Discomfort [Unknown]
  - Depression [Unknown]
